FAERS Safety Report 10205213 (Version 5)
Quarter: 2016Q1

REPORT INFORMATION
  Report Type: Spontaneous
  Country: US (occurrence: US)
  Receive Date: 20140529
  Receipt Date: 20160311
  Transmission Date: 20160525
  Serious: Yes (Hospitalization, Disabling, Other)
  Sender: FDA-Public Use
  Company Number: US-PFIZER INC-2014146773

PATIENT
  Age: 24 Year
  Sex: Female

DRUGS (13)
  1. LYRICA [Suspect]
     Active Substance: PREGABALIN
     Indication: FIBROMYALGIA
     Dosage: 150 MG, 2X/DAY
     Route: 048
  2. EPINEPHRINE. [Concomitant]
     Active Substance: EPINEPHRINE
     Dosage: 0.3 MG, AS NEEDED (INJECT 0.3 MLS (0.3 MG TOTAL) INTO THE MUSCLE ONCE AS NEEDED)
     Route: 030
  3. IRON POLYSACCHARIDES [Concomitant]
     Dosage: 150 MG, DAILY
     Route: 048
  4. MONTELUKAST [Concomitant]
     Active Substance: MONTELUKAST SODIUM
     Dosage: 10 MG, 1X/DAY (NIGHTLY)
     Route: 048
  5. ESCITALOPRAM OXALATE. [Concomitant]
     Active Substance: ESCITALOPRAM OXALATE
     Dosage: 1.5 MG, DAILY
     Route: 048
  6. LEVALBUTEROL. [Concomitant]
     Active Substance: LEVALBUTEROL
     Indication: WHEEZING
     Dosage: UNK, AS NEEDED  (INHALE 1-2 PUFFS INTO THE LUNGS EVERY 4 (FOUR) HOURS AS NEEDED)
  7. ALPRAZOLAM. [Concomitant]
     Active Substance: ALPRAZOLAM
     Indication: SLEEP DISORDER
     Dosage: 0.5 MG, UNK (TAKE 0.5 MG NIGHTLY AS NEEDED/1/2 TABLET EVERY OTHER DAY)
     Route: 048
  8. BUTALBITAL, ACETAMINOPHEN, AND CAFFEINE [Concomitant]
     Active Substance: ACETAMINOPHEN\BUTALBITAL\CAFFEINE
     Dosage: 1 DF, AS NEEDED (BUTALBITAL 50MG, CAFFEINE 40MG, PARACETAMOL 325MG,TAKE 1 TABLET EVERY 6 HOURS)
     Route: 048
  9. DIMETHYL FUMARATE [Concomitant]
     Active Substance: DIMETHYL FUMARATE
     Dosage: 120 MG, 2X/DAY
     Route: 048
  10. CARISOPRODOL. [Concomitant]
     Active Substance: CARISOPRODOL
     Indication: MUSCLE SPASMS
     Dosage: 350 MG, AS NEEDED (2 TIMES DAILY AS NEEDED)
     Route: 048
  11. ESOMEPRAZOLE [Concomitant]
     Active Substance: ESOMEPRAZOLE
     Dosage: 40 MG, DAILY
     Route: 048
  12. DIAZEPAM. [Concomitant]
     Active Substance: DIAZEPAM
     Dosage: 2 MG, AS NEEDED (2 MG EVERY 6 (SIX) HOURS AS NEEDED )
  13. HYDROCODONE/ACETAMINOPHEN [Concomitant]
     Active Substance: ACETAMINOPHEN\HYDROCODONE
     Dosage: 1 DF, 2X/DAY (HYDROCODONE BITARTRATE 5MG, PARACETAMOL 325MG)
     Route: 048

REACTIONS (14)
  - Memory impairment [Not Recovered/Not Resolved]
  - Thought blocking [Not Recovered/Not Resolved]
  - Communication disorder [Not Recovered/Not Resolved]
  - Cervicobrachial syndrome [Unknown]
  - Fatigue [Unknown]
  - Drug ineffective [Unknown]
  - Central nervous system lesion [Unknown]
  - Migraine [Unknown]
  - Nervous system disorder [Unknown]
  - Headache [Not Recovered/Not Resolved]
  - Arthritis [Unknown]
  - Multiple sclerosis [Not Recovered/Not Resolved]
  - Road traffic accident [Not Recovered/Not Resolved]
  - Dysphemia [Unknown]

NARRATIVE: CASE EVENT DATE: 1995
